FAERS Safety Report 25831223 (Version 3)
Quarter: 2025Q4

REPORT INFORMATION
  Report Type: Spontaneous
  Country: JP (occurrence: JP)
  Receive Date: 20250922
  Receipt Date: 20251112
  Transmission Date: 20260118
  Serious: Yes (Hospitalization, Other)
  Sender: PFIZER
  Company Number: JP-GENMAB-2025-02418

PATIENT
  Age: 36 Year
  Sex: Female

DRUGS (2)
  1. TIVDAK [Suspect]
     Active Substance: TISOTUMAB VEDOTIN-TFTV
     Indication: Cervix carcinoma
     Dosage: 80 MILLIGRAM
     Route: 042
     Dates: start: 20250718, end: 20250903
  2. MIROGABALIN BESYLATE [Concomitant]
     Active Substance: MIROGABALIN BESYLATE
     Dosage: UNK

REACTIONS (11)
  - Platelet count decreased [Recovered/Resolved]
  - Hypoaesthesia [Recovering/Resolving]
  - Rash [Recovered/Resolved]
  - Decreased appetite [Recovered/Resolved]
  - Pyrexia [Recovered/Resolved]
  - Renal impairment [Recovering/Resolving]
  - Protein urine [Recovering/Resolving]
  - Diarrhoea [Recovered/Resolved]
  - Epistaxis [Recovering/Resolving]
  - Alopecia [Not Recovered/Not Resolved]
  - Nausea [Recovering/Resolving]

NARRATIVE: CASE EVENT DATE: 20250718
